FAERS Safety Report 17545176 (Version 1)
Quarter: 2020Q1

REPORT INFORMATION
  Report Type: Spontaneous
  Country: US (occurrence: US)
  Receive Date: 20200316
  Receipt Date: 20200316
  Transmission Date: 20200409
  Serious: No
  Sender: FDA-Public Use
  Company Number: US-TEVA-2020-US-1198487

PATIENT
  Sex: Female

DRUGS (2)
  1. QVAR [Suspect]
     Active Substance: BECLOMETHASONE DIPROPIONATE
     Route: 065
  2. QVAR REDIHALER [Suspect]
     Active Substance: BECLOMETHASONE DIPROPIONATE
     Route: 065

REACTIONS (6)
  - Glossodynia [Unknown]
  - Oral mucosal discolouration [Unknown]
  - Hypoaesthesia oral [Unknown]
  - Mastication disorder [Unknown]
  - Oral pain [Unknown]
  - Stomatitis [Unknown]
